FAERS Safety Report 10740430 (Version 2)
Quarter: 2016Q4

REPORT INFORMATION
  Report Type: Report from Study
  Country: US (occurrence: US)
  Receive Date: 20150127
  Receipt Date: 20161005
  Transmission Date: 20170206
  Serious: Yes (Hospitalization, Other)
  Sender: FDA-Public Use
  Company Number: US-ROCHE-1523566

PATIENT
  Age: 68 Year
  Sex: Female
  Weight: 64 kg

DRUGS (15)
  1. VELIPARIB [Suspect]
     Active Substance: VELIPARIB
     Indication: OVARIAN EPITHELIAL CANCER
     Dosage: BID ON DAYS 1-21.
     Route: 048
     Dates: start: 20141124, end: 20141215
  2. PACLITAXEL. [Suspect]
     Active Substance: PACLITAXEL
     Indication: OVARIAN EPITHELIAL CANCER
     Dosage: OVER 3 HOOURS IN 1 DAY?DATE OF LAST DOSE OF ACLITAXEL ADMINIATERED PRIOR TO THE EVENT.
     Route: 042
     Dates: start: 20141124, end: 20141124
  3. BEVACIZUMAB [Suspect]
     Active Substance: BEVACIZUMAB
     Route: 042
     Dates: start: 20140811
  4. BEVACIZUMAB [Suspect]
     Active Substance: BEVACIZUMAB
     Route: 042
     Dates: start: 20150423
  5. VELIPARIB [Suspect]
     Active Substance: VELIPARIB
     Route: 048
     Dates: start: 20140811
  6. VELIPARIB [Suspect]
     Active Substance: VELIPARIB
     Route: 048
     Dates: start: 20141013
  7. VELIPARIB [Suspect]
     Active Substance: VELIPARIB
     Dosage: RECEIVED ON 24/NOV/2014
     Route: 048
     Dates: start: 20141103
  8. BEVACIZUMAB [Suspect]
     Active Substance: BEVACIZUMAB
     Indication: OVARIAN EPITHELIAL CANCER
     Dosage: OVER 30-90 MINS ON DAY 1?DATE OF LAST DOSE OF BEVACIZUMAB ADMINISTERED PRIOR TO EVENT
     Route: 042
     Dates: start: 20141124, end: 20141124
  9. VELIPARIB [Suspect]
     Active Substance: VELIPARIB
     Route: 048
     Dates: start: 20140902
  10. BEVACIZUMAB [Suspect]
     Active Substance: BEVACIZUMAB
     Route: 042
     Dates: start: 20150223
  11. VELIPARIB [Suspect]
     Active Substance: VELIPARIB
     Route: 048
     Dates: start: 20150423
  12. VELIPARIB [Suspect]
     Active Substance: VELIPARIB
     Route: 048
     Dates: start: 20140922
  13. CARBOPLATIN. [Suspect]
     Active Substance: CARBOPLATIN
     Indication: OVARIAN EPITHELIAL CANCER
     Dosage: 6 IV OVER 30 MIN ON DAY 1
     Route: 042
     Dates: start: 20141124, end: 20141124
  14. BEVACIZUMAB [Suspect]
     Active Substance: BEVACIZUMAB
     Route: 042
     Dates: start: 20150316
  15. BEVACIZUMAB [Suspect]
     Active Substance: BEVACIZUMAB
     Dosage: RECEIVED ON 22/SEP/2014, 13/OCT/2014, 24/NOV/2014,12/JAN/2015
     Route: 042
     Dates: start: 20140902

REACTIONS (8)
  - Dizziness [Unknown]
  - Platelet count decreased [Unknown]
  - White blood cell count decreased [Unknown]
  - Neutrophil count decreased [Unknown]
  - Hyponatraemia [Unknown]
  - Hyperglycaemia [Unknown]
  - Hypertriglyceridaemia [Unknown]
  - Syncope [Unknown]

NARRATIVE: CASE EVENT DATE: 20141211
